FAERS Safety Report 5028920-8 (Version None)
Quarter: 2006Q2

REPORT INFORMATION
  Report Type: 
  Country: None (occurrence: None)
  Receive Date: 20060619
  Receipt Date: 20060530
  Transmission Date: 20061013
  Serious: Yes (Other)
  Sender: FDA-Public Use
  Company Number: JP-GLAXOSMITHKLINE-B0427546A

PATIENT
  Age: 60 Year
  Sex: Female
  Weight: 69 kg

DRUGS (7)
  1. ADEFOVIR DIPIVOXIL [Suspect]
     Indication: HEPATIC CIRRHOSIS
     Route: 048
     Dates: start: 20040219, end: 20040617
  2. ZEFIX [Suspect]
     Indication: HEPATIC CIRRHOSIS
     Dosage: 100MG PER DAY
     Route: 048
     Dates: start: 20010904, end: 20040318
  3. ZEFIX [Suspect]
     Dosage: 100MG PER DAY
     Route: 048
     Dates: start: 20040617
  4. BIOFERMIN [Concomitant]
     Route: 048
  5. URSO [Concomitant]
     Dosage: 100MG THREE TIMES PER DAY
     Route: 048
  6. GLAKAY [Concomitant]
     Dosage: 15MG THREE TIMES PER DAY
     Route: 048
  7. ZYRTEC [Concomitant]
     Route: 048

REACTIONS (3)
  - DIABETES MELLITUS [None]
  - GLYCOSYLATED HAEMOGLOBIN INCREASED [None]
  - HYPOGLYCAEMIA [None]
